FAERS Safety Report 9255402 (Version 1)
Quarter: 2013Q2

REPORT INFORMATION
  Report Type: Spontaneous
  Country: US (occurrence: US)
  Receive Date: 20130425
  Receipt Date: 20130425
  Transmission Date: 20140414
  Serious: No
  Sender: FDA-Public Use
  Company Number: US-BRISTOL-MYERS SQUIBB COMPANY-16807539

PATIENT
  Age: 63 Year
  Sex: Female
  Weight: 62.58 kg

DRUGS (3)
  1. HYDROXYUREA [Suspect]
     Indication: LEUKAEMIA
  2. SPRYCEL [Suspect]
     Indication: LEUKAEMIA
     Dates: start: 201202
  3. GLEEVEC [Suspect]
     Indication: LEUKAEMIA

REACTIONS (3)
  - Urticaria [Unknown]
  - Swelling face [Recovered/Resolved]
  - Eye swelling [Unknown]
